FAERS Safety Report 12834605 (Version 1)
Quarter: 2016Q4

REPORT INFORMATION
  Report Type: Spontaneous
  Country: DE (occurrence: DE)
  Receive Date: 20161010
  Receipt Date: 20161010
  Transmission Date: 20170207
  Serious: Yes (Hospitalization)
  Sender: FDA-Public Use
  Company Number: DE-PFIZER INC-2016466584

PATIENT
  Age: 77 Year
  Sex: Female

DRUGS (1)
  1. ZYVOXID [Suspect]
     Active Substance: LINEZOLID
     Indication: PATHOGEN RESISTANCE
     Dosage: 600 MG, UNK
     Dates: start: 2015

REACTIONS (8)
  - Dry mouth [Not Recovered/Not Resolved]
  - Product use issue [Unknown]
  - Tooth discolouration [Recovered/Resolved]
  - Alopecia [Recovering/Resolving]
  - Ageusia [Not Recovered/Not Resolved]
  - Stomatitis [Not Recovered/Not Resolved]
  - Anosmia [Not Recovered/Not Resolved]
  - Visual field defect [Not Recovered/Not Resolved]

NARRATIVE: CASE EVENT DATE: 201511
